FAERS Safety Report 24555662 (Version 1)
Quarter: 2024Q4

REPORT INFORMATION
  Report Type: Spontaneous
  Country: BR (occurrence: BR)
  Receive Date: 20241028
  Receipt Date: 20241028
  Transmission Date: 20250115
  Serious: Yes (Other)
  Sender: NOVO NORDISK
  Company Number: BR-NOVOPROD-1300267

PATIENT
  Age: 66 Year
  Sex: Female

DRUGS (3)
  1. OZEMPIC [Suspect]
     Active Substance: SEMAGLUTIDE
     Indication: Product used for unknown indication
     Dosage: 0.25 MG
  2. OZEMPIC [Suspect]
     Active Substance: SEMAGLUTIDE
     Dosage: 0.5 MG
     Dates: end: 202410
  3. OZEMPIC [Suspect]
     Active Substance: SEMAGLUTIDE
     Indication: Product used for unknown indication
     Dosage: 1 MG
     Dates: start: 202404, end: 202408

REACTIONS (4)
  - Medullary thyroid cancer [Unknown]
  - Weight decreased [Unknown]
  - Off label use [Recovered/Resolved]
  - Prescription drug used without a prescription [Unknown]

NARRATIVE: CASE EVENT DATE: 20240401
